FAERS Safety Report 9641423 (Version 1)
Quarter: 2013Q4

REPORT INFORMATION
  Report Type: Spontaneous
  Country: US (occurrence: US)
  Receive Date: 20131023
  Receipt Date: 20131023
  Transmission Date: 20140711
  Serious: No
  Sender: FDA-Public Use
  Company Number: US-ABBVIE-12P-163-1003609-00

PATIENT
  Age: 27 Year
  Sex: Female
  Weight: 66.74 kg

DRUGS (3)
  1. LUPRON DEPOT [Suspect]
     Indication: UTERINE LEIOMYOMA
     Dates: start: 20121023
  2. NEXIUM [Concomitant]
     Indication: GASTROOESOPHAGEAL REFLUX DISEASE
  3. DETROL [Concomitant]
     Indication: URINARY RETENTION

REACTIONS (4)
  - Off label use [Unknown]
  - Vaginal haemorrhage [Not Recovered/Not Resolved]
  - Adnexa uteri pain [Not Recovered/Not Resolved]
  - Hot flush [Not Recovered/Not Resolved]
